FAERS Safety Report 4534502-4 (Version None)
Quarter: 2004Q4

REPORT INFORMATION
  Report Type: 
  Country: None (occurrence: None)
  Receive Date: 20041221
  Receipt Date: 20041105
  Transmission Date: 20050328
  Serious: Yes (Other)
  Sender: FDA-Public Use
  Company Number: 2004AP000868

PATIENT
  Sex: Female

DRUGS (1)
  1. OMEPRAZOLE [Suspect]
     Dosage: 20 MG; EVERY DAY (DAILY); ORAL
     Route: 048
     Dates: start: 20041001, end: 20041004

REACTIONS (11)
  - CHEST DISCOMFORT [None]
  - DIZZINESS [None]
  - DYSGEUSIA [None]
  - DYSPNOEA [None]
  - FLUSHING [None]
  - HYPERHIDROSIS [None]
  - HYPOAESTHESIA ORAL [None]
  - MOTION SICKNESS [None]
  - NAUSEA [None]
  - PURPURA [None]
  - SKIN DISCOLOURATION [None]
